FAERS Safety Report 8793346 (Version 1)
Quarter: 2012Q4

REPORT INFORMATION
  Report Type: Report from Study
  Country: DE (occurrence: DE)
  Receive Date: 20120918
  Receipt Date: 20120918
  Transmission Date: 20130627
  Serious: Yes (Death, Life-Threatening, Hospitalization)
  Sender: FDA-Public Use
  Company Number: DE-ROCHE-1128296

PATIENT
  Age: 70 Year
  Sex: Male
  Weight: 74.5 kg

DRUGS (11)
  1. MIRCERA [Suspect]
     Indication: NEPHROGENIC ANAEMIA
     Dosage: Date of last dose prior to SAE: 12/Apr/2012
     Route: 065
     Dates: start: 20120112
  2. EUTHYROX [Concomitant]
     Route: 065
     Dates: start: 20120414
  3. CARVEDILOL [Concomitant]
     Indication: CORONARY ARTERY DISEASE
     Route: 065
  4. FUROSEMIDE [Concomitant]
     Route: 065
  5. ASS [Concomitant]
     Indication: CORONARY ARTERY DISEASE
     Route: 065
  6. OSVAREN [Concomitant]
     Dosage: 3 x 2
     Route: 065
  7. OMEPRAZOL [Concomitant]
     Route: 065
  8. MCP [Concomitant]
  9. LACTULOSE SYRUP [Concomitant]
  10. INSULIN [Concomitant]
  11. FERRLECIT [Concomitant]

REACTIONS (2)
  - Sudden cardiac death [Fatal]
  - Shunt occlusion [Fatal]
